FAERS Safety Report 7372448-7 (Version None)
Quarter: 2011Q1

REPORT INFORMATION
  Report Type: 
  Country: None (occurrence: None)
  Receive Date: 20110316
  Receipt Date: 20110302
  Transmission Date: 20110831
  Serious: Yes (Hospitalization)
  Sender: FDA-Public Use
  Company Number: 20110185

PATIENT
  Age: 65 Year
  Sex: Female
  Weight: 101.1521 kg

DRUGS (5)
  1. LYRICA [Concomitant]
  2. LASIX [Concomitant]
  3. ACCUPRIL [Concomitant]
  4. VENOFER [Suspect]
     Indication: IRON DEFICIENCY ANAEMIA
     Dosage: 200 MG, 5 TIMES PER
     Dates: start: 20110201, end: 20110215
  5. EVISTA [Concomitant]

REACTIONS (3)
  - BLOOD CREATININE INCREASED [None]
  - DIARRHOEA [None]
  - BLOOD UREA INCREASED [None]
